FAERS Safety Report 7331299-X (Version None)
Quarter: 2011Q1

REPORT INFORMATION
  Report Type: 
  Country: None (occurrence: None)
  Receive Date: 20110223
  Receipt Date: 20110207
  Transmission Date: 20110831
  Serious: Yes (Other)
  Sender: FDA-Public Use
  Company Number: DSA_43585_2010

PATIENT
  Age: 44 Year
  Sex: Male

DRUGS (2)
  1. TILDIEM (TILDIEM LA - DILTIAZEM HYDROCHLORIDE) 300 MG (NOT SPECIFIED) [Suspect]
     Indication: MICROVASCULAR ANGINA
     Dosage: (300 MG QD ORAL)
     Route: 048
     Dates: start: 20030101
  2. MULTI-VITAMINS [Concomitant]

REACTIONS (3)
  - MUSCLE RIGIDITY [None]
  - DYSPNOEA [None]
  - MUSCULOSKELETAL STIFFNESS [None]
